FAERS Safety Report 15791167 (Version 2)
Quarter: 2019Q1

REPORT INFORMATION
  Report Type: Spontaneous
  Country: IE (occurrence: US)
  Receive Date: 20190104
  Receipt Date: 20190307
  Transmission Date: 20190417
  Serious: Yes (Death)
  Sender: FDA-Public Use
  Company Number: IE-MYLANLABS-2018M1097897

PATIENT
  Age: 50 Year
  Sex: Male
  Weight: 60 kg

DRUGS (23)
  1. LORAZEPAM. [Suspect]
     Active Substance: LORAZEPAM
     Indication: INSOMNIA
     Dosage: 2 MG, UNK (AT ABOUT 2:00 O^CLOCK AND AT 5:00 O^CLOCK IN THE MORNINGUNK
     Route: 042
     Dates: start: 20090625
  2. PROPOFOL. [Suspect]
     Active Substance: PROPOFOL
     Indication: INSOMNIA
     Dosage: 25 MG, SINGLE
     Route: 042
     Dates: start: 20090624, end: 20090624
  3. VISTARIL                           /00058402/ [Suspect]
     Active Substance: HYDROXYZINE HYDROCHLORIDE
     Indication: ANXIOLYTIC THERAPY
     Dosage: UNK
  4. EPHEDRINE SULFATE. [Suspect]
     Active Substance: EPHEDRINE SULFATE
     Indication: PRODUCT USED FOR UNKNOWN INDICATION
     Dosage: UNK
  5. DIPRIVAN [Suspect]
     Active Substance: PROPOFOL
     Dosage: 25 MG, SINGLE
     Dates: start: 20090622, end: 20090622
  6. MIDAZOLAM [Suspect]
     Active Substance: MIDAZOLAM HYDROCHLORIDE
     Indication: INSOMNIA
     Dosage: UNK
     Dates: start: 20090625
  7. PRILOSEC [Suspect]
     Active Substance: OMEPRAZOLE MAGNESIUM
     Indication: GASTRIC ULCER
     Dosage: UNK
  8. PAXIL [Suspect]
     Active Substance: PAROXETINE HYDROCHLORIDE
     Indication: DEPRESSION
     Dosage: UNK
  9. PROPOFOL. [Suspect]
     Active Substance: PROPOFOL
     Dosage: 25 MG, UNK (AT 11:00 O^CLOCK IN THE MORNING)
     Route: 042
     Dates: start: 20090625
  10. VALIUM [Suspect]
     Active Substance: DIAZEPAM
     Indication: INSOMNIA
     Dosage: 10 MILLIGRAM
     Route: 048
     Dates: end: 20090625
  11. PROPOFOL. [Suspect]
     Active Substance: PROPOFOL
     Indication: ANAESTHESIA
     Dosage: UNK
  12. XANAX [Suspect]
     Active Substance: ALPRAZOLAM
     Indication: PRODUCT USED FOR UNKNOWN INDICATION
     Dosage: UNK
  13. DILAUDID [Suspect]
     Active Substance: HYDROMORPHONE HYDROCHLORIDE
     Indication: PRODUCT USED FOR UNKNOWN INDICATION
     Dosage: UNK
  14. MIDAZOLAM [Suspect]
     Active Substance: MIDAZOLAM HYDROCHLORIDE
     Indication: SLEEP DISORDER THERAPY
     Dosage: UNK
     Dates: start: 20090622, end: 20090624
  15. LORAZEPAM. [Suspect]
     Active Substance: LORAZEPAM
     Indication: PROPHYLAXIS
     Dosage: UNK
     Route: 042
     Dates: start: 20090622, end: 20090624
  16. ZOLOFT [Suspect]
     Active Substance: SERTRALINE HYDROCHLORIDE
     Indication: DEPRESSION
     Dosage: UNK
  17. DEMEROL [Suspect]
     Active Substance: MEPERIDINE HYDROCHLORIDE
     Indication: SLEEP DISORDER THERAPY
     Dosage: UNK
  18. DIPRIVAN [Suspect]
     Active Substance: PROPOFOL
     Indication: INSOMNIA
     Dosage: 50 MILLIGRAM, QD
     Dates: end: 20090621
  19. DIPRIVAN [Suspect]
     Active Substance: PROPOFOL
     Dosage: 25 MILLIGRAM, TOTAL
     Route: 041
     Dates: start: 20090624, end: 20090624
  20. LIDOCAINE. [Suspect]
     Active Substance: LIDOCAINE
     Indication: INSOMNIA
     Dosage: UNK
     Route: 041
     Dates: start: 20090624, end: 20090624
  21. CARISOPRODOL. [Suspect]
     Active Substance: CARISOPRODOL
     Indication: MUSCLE RELAXANT THERAPY
     Dosage: UNK
  22. VICODIN [Suspect]
     Active Substance: ACETAMINOPHEN\HYDROCODONE BITARTRATE
     Indication: PRODUCT USED FOR UNKNOWN INDICATION
     Dosage: UNK
  23. SOMA [Suspect]
     Active Substance: CARISOPRODOL
     Indication: MUSCLE RELAXANT THERAPY

REACTIONS (7)
  - Respiratory arrest [Fatal]
  - Drug abuse [Fatal]
  - Overdose [Fatal]
  - Toxicity to various agents [Fatal]
  - Off label use [Fatal]
  - Cardiac arrest [Fatal]
  - Administration related reaction [Fatal]

NARRATIVE: CASE EVENT DATE: 2009
